FAERS Safety Report 12940679 (Version 1)
Quarter: 2016Q4

REPORT INFORMATION
  Report Type: Spontaneous
  Country: GB (occurrence: GB)
  Receive Date: 20161114
  Receipt Date: 20161114
  Transmission Date: 20170207
  Serious: Yes (Other)
  Sender: FDA-Public Use
  Company Number: GB-MYLANLABS-2016M1048509

PATIENT

DRUGS (4)
  1. CLOZARIL [Suspect]
     Active Substance: CLOZAPINE
     Dosage: 300 MG, AM
     Route: 048
     Dates: start: 2016
  2. CLOZARIL [Suspect]
     Active Substance: CLOZAPINE
     Dosage: 400 MG, PM
     Route: 048
     Dates: start: 2016
  3. CLOZARIL [Suspect]
     Active Substance: CLOZAPINE
     Indication: SCHIZOPHRENIA
     Dosage: 100 MG, AM
     Route: 048
     Dates: start: 20160703
  4. CLOZARIL [Suspect]
     Active Substance: CLOZAPINE
     Dosage: 400 MG, PM
     Route: 048
     Dates: start: 20160703

REACTIONS (1)
  - Psychotic disorder [Unknown]

NARRATIVE: CASE EVENT DATE: 2016
